FAERS Safety Report 4785230-1 (Version None)
Quarter: 2005Q3

REPORT INFORMATION
  Report Type: 
  Country: None (occurrence: None)
  Receive Date: 20050930
  Receipt Date: 20050923
  Transmission Date: 20060218
  Serious: Yes (Other)
  Sender: FDA-Public Use
  Company Number: GB-MERCK-0509GBR00169

PATIENT
  Age: 84 Year
  Sex: Male

DRUGS (2)
  1. PRIMAXIN [Suspect]
     Indication: PNEUMONIA
     Route: 051
     Dates: start: 20050921
  2. METRONIDAZOLE [Concomitant]
     Route: 065

REACTIONS (2)
  - BILIRUBINURIA [None]
  - THROMBOCYTOPENIA [None]
